FAERS Safety Report 6578577-X (Version None)
Quarter: 2010Q1

REPORT INFORMATION
  Report Type: 
  Country: None (occurrence: None)
  Receive Date: 20100211
  Receipt Date: 20100202
  Transmission Date: 20100710
  Serious: Yes (Hospitalization)
  Sender: FDA-Public Use
  Company Number: ES-ABBOTT-10P-144-0623459-00

PATIENT
  Age: 29 Year
  Sex: Male

DRUGS (1)
  1. SECALIP [Suspect]
     Indication: HYPERTRIGLYCERIDAEMIA
     Dosage: 160MG DAILY
     Dates: start: 20090312, end: 20090326

REACTIONS (1)
  - TENDON RUPTURE [None]
